FAERS Safety Report 10513648 (Version 1)
Quarter: 2014Q4

REPORT INFORMATION
  Report Type: Report from Study
  Country: US (occurrence: US)
  Receive Date: 20141013
  Receipt Date: 20141013
  Transmission Date: 20150528
  Serious: Yes (Hospitalization)
  Sender: FDA-Public Use
  Company Number: US-AMGEN-USACT2014077647

PATIENT
  Sex: Male

DRUGS (3)
  1. FOLFIRI [Concomitant]
     Active Substance: FLUOROURACIL\IRINOTECAN\LEUCOVORIN
     Indication: COLORECTAL CANCER METASTATIC
     Dosage: UNK
     Dates: start: 20140702
  2. PANITUMUMAB [Suspect]
     Active Substance: PANITUMUMAB
     Indication: COLORECTAL CANCER METASTATIC
     Dosage: UNK
     Route: 065
     Dates: start: 20140702
  3. FLOXURIDINE. [Concomitant]
     Active Substance: FLOXURIDINE
     Indication: COLORECTAL CANCER METASTATIC
     Dosage: UNK
     Dates: start: 20140702

REACTIONS (1)
  - Diarrhoea [Recovering/Resolving]

NARRATIVE: CASE EVENT DATE: 20141003
